FAERS Safety Report 21881996 (Version 1)
Quarter: 2023Q1

REPORT INFORMATION
  Report Type: Spontaneous
  Country: TW (occurrence: TW)
  Receive Date: 20230119
  Receipt Date: 20230119
  Transmission Date: 20230418
  Serious: Yes (Hospitalization)
  Sender: FDA-Public Use
  Company Number: TW-PFIZER INC-PV202300006846

PATIENT
  Age: 77 Year
  Sex: Male

DRUGS (1)
  1. ENBREL [Suspect]
     Active Substance: ETANERCEPT
     Indication: Psoriatic arthropathy
     Dosage: 25 MG, 2X/WEEK (BIW)
     Route: 058
     Dates: start: 20200910, end: 20221219

REACTIONS (1)
  - Chronic obstructive pulmonary disease [Recovered/Resolved]
